FAERS Safety Report 21548250 (Version 2)
Quarter: 2022Q4

REPORT INFORMATION
  Report Type: Spontaneous
  Country: US (occurrence: US)
  Receive Date: 20221103
  Receipt Date: 20221119
  Transmission Date: 20230113
  Serious: Yes (Hospitalization)
  Sender: FDA-Public Use
  Company Number: US-TEVA-2022-US-2821456

PATIENT
  Age: 20 Year
  Sex: Male

DRUGS (9)
  1. VINCRISTINE [Suspect]
     Active Substance: VINCRISTINE
     Indication: Ewing^s sarcoma
     Dosage: DOSAGE: RECEIVED 14 CYCLES , 2 MG/M2
     Route: 065
  2. IFOSFAMIDE [Suspect]
     Active Substance: IFOSFAMIDE
     Indication: Ewing^s sarcoma
     Dosage: 1800 MG/M2
     Route: 065
  3. ETOPOSIDE [Suspect]
     Active Substance: ETOPOSIDE
     Indication: Ewing^s sarcoma
     Dosage: 100 MG/M2
     Route: 065
  4. MESNA [Suspect]
     Active Substance: MESNA
     Indication: Ewing^s sarcoma
     Dosage: DOSAGE: RECEIVED 14 CYCLES
     Route: 065
  5. ADRIAMYCIN [Suspect]
     Active Substance: DOXORUBICIN HYDROCHLORIDE
     Indication: Ewing^s sarcoma
     Dosage: DOSAGE: RECEIVED 14 CYCLES , 75 MG/M2
     Route: 065
  6. DEXAMETHASONE [Concomitant]
     Active Substance: DEXAMETHASONE
     Indication: Ewing^s sarcoma
     Dosage: 10 MG
     Route: 042
  7. DEXAMETHASONE [Concomitant]
     Active Substance: DEXAMETHASONE
     Route: 065
  8. ACETAMINOPHEN [Concomitant]
     Active Substance: ACETAMINOPHEN
     Indication: Ewing^s sarcoma
     Dosage: 500 MG
     Route: 048
  9. NAPROXEN [Concomitant]
     Active Substance: NAPROXEN
     Indication: Ewing^s sarcoma
     Dosage: 500 MG
     Route: 048

REACTIONS (1)
  - Febrile neutropenia [Unknown]
